FAERS Safety Report 9361740 (Version 1)
Quarter: 2013Q2

REPORT INFORMATION
  Report Type: Spontaneous
  Country: US (occurrence: US)
  Receive Date: 20130621
  Receipt Date: 20130621
  Transmission Date: 20140414
  Serious: Yes (Other)
  Sender: FDA-Public Use
  Company Number: US-GILEAD-2013-0073720

PATIENT
  Sex: Female

DRUGS (3)
  1. LETAIRIS [Suspect]
     Indication: PULMONARY HYPERTENSION
     Dosage: 10 MG, QD
     Route: 048
     Dates: start: 20100528
  2. SILDENAFIL [Concomitant]
  3. VENTAVIS [Concomitant]

REACTIONS (3)
  - Cardiac pacemaker insertion [Unknown]
  - Mass [Unknown]
  - Abnormal sensation in eye [Unknown]
